FAERS Safety Report 22948908 (Version 2)
Quarter: 2023Q4

REPORT INFORMATION
  Report Type: Report from Study
  Country: US (occurrence: US)
  Receive Date: 20230915
  Receipt Date: 20231010
  Transmission Date: 20240110
  Serious: Yes (Hospitalization, Other)
  Sender: FDA-Public Use
  Company Number: US-002147023-NVSC2023US197976

PATIENT
  Age: 68 Year
  Sex: Female
  Weight: 36 kg

DRUGS (4)
  1. LAMPRENE [Suspect]
     Active Substance: CLOFAZIMINE
     Indication: Mycobacterium avium complex infection
     Dosage: 100 MG
     Route: 048
     Dates: start: 20230606
  2. LAMPRENE [Suspect]
     Active Substance: CLOFAZIMINE
     Indication: Mycobacterium abscessus infection
     Dosage: 100 MG
     Route: 048
     Dates: start: 20230621
  3. LAMPRENE [Suspect]
     Active Substance: CLOFAZIMINE
     Dosage: 100 MG
     Route: 048
     Dates: start: 20230928
  4. AMIKACIN [Concomitant]
     Active Substance: AMIKACIN
     Indication: Mycobacterium avium complex infection
     Dosage: 350 MG, QMO (EVERY MONDAY WEDNESDAY AND FRIDAY)
     Route: 065
     Dates: start: 20230621, end: 20230627

REACTIONS (6)
  - Leukocytosis [Unknown]
  - Pneumonia [Not Recovered/Not Resolved]
  - Pleural effusion [Not Recovered/Not Resolved]
  - Pyrexia [Recovered/Resolved]
  - Normocytic anaemia [Recovering/Resolving]
  - Tachycardia [Unknown]

NARRATIVE: CASE EVENT DATE: 20230831
